FAERS Safety Report 16174828 (Version 2)
Quarter: 2019Q3

REPORT INFORMATION
  Report Type: Report from Study
  Country: None (occurrence: US)
  Receive Date: 20190409
  Receipt Date: 20190710
  Transmission Date: 20191004
  Serious: Yes (Hospitalization, Other)
  Sender: FDA-Public Use
  Company Number: US-ABBVIE-18K-163-2482203-00

PATIENT
  Age: 49 Year
  Sex: Female

DRUGS (3)
  1. HUMIRA [Suspect]
     Active Substance: ADALIMUMAB
     Indication: PSORIATIC ARTHROPATHY
     Route: 058
     Dates: start: 20190403
  2. HUMIRA [Suspect]
     Active Substance: ADALIMUMAB
     Indication: PSORIASIS
     Route: 058
     Dates: start: 201807, end: 201902
  3. HUMIRA [Suspect]
     Active Substance: ADALIMUMAB
     Indication: PSORIASIS

REACTIONS (20)
  - Therapeutic response shortened [Recovering/Resolving]
  - Sinusitis [Not Recovered/Not Resolved]
  - Heart valve incompetence [Recovering/Resolving]
  - Pneumonia [Recovered/Resolved]
  - Skin burning sensation [Unknown]
  - Pain of skin [Recovering/Resolving]
  - Psoriasis [Recovered/Resolved]
  - Arthralgia [Unknown]
  - Helplessness [Unknown]
  - Pain in extremity [Unknown]
  - Dyspnoea [Recovering/Resolving]
  - Arthritis [Recovered/Resolved]
  - Pruritus [Unknown]
  - Alopecia [Recovering/Resolving]
  - Bronchitis [Not Recovered/Not Resolved]
  - Foot deformity [Unknown]
  - Skin irritation [Recovering/Resolving]
  - Fatigue [Not Recovered/Not Resolved]
  - Pruritus [Recovered/Resolved]
  - Psoriasis [Recovered/Resolved]

NARRATIVE: CASE EVENT DATE: 2018
